FAERS Safety Report 13204193 (Version 1)
Quarter: 2017Q1

REPORT INFORMATION
  Report Type: Spontaneous
  Country: US (occurrence: US)
  Receive Date: 20170209
  Receipt Date: 20170209
  Transmission Date: 20170428
  Serious: Yes (Hospitalization, Other)
  Sender: FDA-Public Use
  Company Number: US-GLAXOSMITHKLINE-US2017GSK018338

PATIENT
  Age: 60 Year
  Sex: Female

DRUGS (3)
  1. NUEDEXTA [Interacting]
     Active Substance: DEXTROMETHORPHAN HYDROBROMIDE\QUINIDINE SULFATE
     Indication: BRAIN INJURY
     Dosage: 1 DF, BID
     Dates: start: 2016, end: 20161225
  2. REVIA [Concomitant]
     Active Substance: NALTREXONE HYDROCHLORIDE
  3. WELLBUTRIN [Suspect]
     Active Substance: BUPROPION HYDROCHLORIDE
     Indication: SMOKING CESSATION THERAPY

REACTIONS (13)
  - Product use issue [Unknown]
  - Myocardial infarction [Unknown]
  - Pruritus [Recovered/Resolved]
  - Scratch [Unknown]
  - Dermatitis [Recovered/Resolved]
  - Erythema [Recovered/Resolved]
  - Pain [Unknown]
  - Speech disorder [Recovered/Resolved]
  - Musculoskeletal pain [Unknown]
  - Aphasia [Unknown]
  - Cerebrovascular accident [Unknown]
  - Chest pain [Unknown]
  - Drug interaction [Unknown]

NARRATIVE: CASE EVENT DATE: 20161103
